FAERS Safety Report 25803516 (Version 1)
Quarter: 2025Q3

REPORT INFORMATION
  Report Type: Report from Study
  Country: GB (occurrence: GB)
  Receive Date: 20250915
  Receipt Date: 20250915
  Transmission Date: 20251021
  Serious: Yes (Congenital Anomaly)
  Sender: GALPHARM INTERNATIONAL
  Company Number: GB-PERRIGO-25GB010821

PATIENT
  Sex: Female
  Weight: 4.082 kg

DRUGS (1)
  1. ULIPRISTAL ACETATE [Suspect]
     Active Substance: ULIPRISTAL ACETATE
     Indication: Exposure during pregnancy
     Route: 064

REACTIONS (2)
  - Developmental hip dysplasia [Unknown]
  - Maternal exposure during pregnancy [Recovered/Resolved]
